FAERS Safety Report 11932524 (Version 1)
Quarter: 2016Q1

REPORT INFORMATION
  Report Type: Spontaneous
  Country: US (occurrence: US)
  Receive Date: 20160120
  Receipt Date: 20160120
  Transmission Date: 20160526
  Serious: No
  Sender: FDA-Public Use
  Company Number: US-BIOGEN-2016BI00171058

PATIENT
  Sex: Female

DRUGS (1)
  1. AVONEX [Suspect]
     Active Substance: INTERFERON BETA-1A
     Indication: MULTIPLE SCLEROSIS
     Route: 065
     Dates: start: 20110623

REACTIONS (7)
  - Musculoskeletal disorder [Unknown]
  - Scar [Unknown]
  - Musculoskeletal stiffness [Unknown]
  - Influenza like illness [Recovered/Resolved]
  - Visual impairment [Unknown]
  - Multiple sclerosis relapse [Not Recovered/Not Resolved]
  - Drug hypersensitivity [Unknown]
